FAERS Safety Report 6174258-5 (Version None)
Quarter: 2009Q2

REPORT INFORMATION
  Report Type: 
  Country: None (occurrence: None)
  Receive Date: 20090430
  Receipt Date: 20080423
  Transmission Date: 20091009
  Serious: No
  Sender: FDA-Public Use
  Company Number: US-ASTRAZENECA-2008UW08277

PATIENT
  Age: 86 Year
  Sex: Female
  Weight: 78.5 kg

DRUGS (1)
  1. NEXIUM [Suspect]
     Indication: HIATUS HERNIA
     Route: 048
     Dates: start: 20050101

REACTIONS (3)
  - BURNING SENSATION [None]
  - HIATUS HERNIA [None]
  - ILL-DEFINED DISORDER [None]
